FAERS Safety Report 5979569-1 (Version None)
Quarter: 2008Q4

REPORT INFORMATION
  Report Type: 
  Country: None (occurrence: None)
  Receive Date: 20081204
  Receipt Date: 20081124
  Transmission Date: 20090506
  Serious: Yes (Other)
  Sender: FDA-Public Use
  Company Number: GR-ELI_LILLY_AND_COMPANY-GR200811005373

PATIENT
  Age: 18 Year
  Sex: Female
  Weight: 35 kg

DRUGS (1)
  1. ZYPREXA [Suspect]
     Indication: BULIMIA NERVOSA
     Dosage: 5 MG, DAILY (1/D)
     Route: 048
     Dates: start: 20081117

REACTIONS (1)
  - LEUKOPENIA [None]
